FAERS Safety Report 6374329-4 (Version None)
Quarter: 2009Q3

REPORT INFORMATION
  Report Type: 
  Country: None (occurrence: None)
  Receive Date: 20090924
  Receipt Date: 20090914
  Transmission Date: 20100115
  Serious: Yes (Death, Hospitalization)
  Sender: FDA-Public Use
  Company Number: JP-BAYER-200910991BYL

PATIENT
  Age: 67 Year
  Sex: Male
  Weight: 63 kg

DRUGS (20)
  1. FLUDARA [Suspect]
     Indication: ACUTE MYELOID LEUKAEMIA
     Dosage: AS USED: 25 MG/M2  UNIT DOSE: 50 MG
     Route: 042
     Dates: start: 20081206, end: 20081210
  2. ALKERAN [Concomitant]
     Indication: ACUTE MYELOID LEUKAEMIA
     Dosage: AS USED: 26.7 MG/M2
     Route: 042
     Dates: start: 20081206, end: 20081207
  3. CYLOCIDE [Concomitant]
     Indication: ACUTE MYELOID LEUKAEMIA
     Dosage: AS USED: 100 MG
     Route: 041
     Dates: start: 20090301, end: 20090303
  4. NOVANTRONE [Concomitant]
     Indication: ACUTE MYELOID LEUKAEMIA
     Dosage: AS USED: 10 MG
     Route: 042
     Dates: start: 20090227, end: 20090227
  5. CONCENTRATED RED CELLS [Concomitant]
     Indication: PACKED RED BLOOD CELL TRANSFUSION
     Route: 042
     Dates: start: 20081206, end: 20090320
  6. PLATELETS [Concomitant]
     Indication: PLATELET TRANSFUSION
     Route: 042
     Dates: start: 20081209, end: 20090321
  7. FRESH FROZEN PLASMA [Concomitant]
     Indication: BLOOD PRODUCT TRANSFUSION
     Route: 042
     Dates: start: 20090305, end: 20090322
  8. CELLCEPT [Concomitant]
     Route: 048
     Dates: start: 20090105, end: 20090108
  9. CELLCEPT [Concomitant]
     Route: 048
     Dates: start: 20090123, end: 20090205
  10. CELLCEPT [Concomitant]
     Route: 048
     Dates: start: 20090116, end: 20090122
  11. PROGRAF [Concomitant]
     Route: 041
     Dates: start: 20081211, end: 20081211
  12. PROGRAF [Concomitant]
     Route: 048
     Dates: start: 20090204, end: 20090210
  13. PROGRAF [Concomitant]
     Route: 048
     Dates: start: 20090226, end: 20090304
  14. PROGRAF [Concomitant]
     Route: 048
     Dates: start: 20090211, end: 20090217
  15. PROGRAF [Concomitant]
     Route: 048
     Dates: start: 20090123, end: 20090205
  16. PROGRAF [Concomitant]
     Dosage: AS USED: 0.2-0.1 ML
     Route: 041
     Dates: start: 20090107, end: 20090121
  17. PROGRAF [Concomitant]
     Dosage: AS USED: 0.32-0.1 ML
     Route: 041
     Dates: start: 20081212, end: 20090105
  18. HYDREA [Concomitant]
     Indication: ACUTE MYELOID LEUKAEMIA
     Route: 048
     Dates: start: 20090227, end: 20090304
  19. HYDREA [Concomitant]
     Route: 048
     Dates: start: 20090225, end: 20090225
  20. HYDREA [Concomitant]
     Route: 048
     Dates: start: 20090226, end: 20090226

REACTIONS (3)
  - ACUTE GRAFT VERSUS HOST DISEASE [None]
  - ACUTE MYELOID LEUKAEMIA [None]
  - CYTOMEGALOVIRUS VIRAEMIA [None]
